FAERS Safety Report 16050270 (Version 1)
Quarter: 2019Q1

REPORT INFORMATION
  Report Type: Report from Study
  Country: DE (occurrence: DE)
  Receive Date: 20190308
  Receipt Date: 20190308
  Transmission Date: 20190418
  Serious: Yes (Other)
  Sender: FDA-Public Use
  Company Number: DE-ROCHE-657559

PATIENT
  Age: 67 Year
  Sex: Female
  Weight: 80 kg

DRUGS (5)
  1. PERTUZUMAB. [Suspect]
     Active Substance: PERTUZUMAB
     Indication: HER-2 POSITIVE BREAST CANCER
     Dosage: DOSAGE FORM: INFUSION. PERMANENTLY DISCONTINUED
     Route: 042
  2. SYMBICORT [Concomitant]
     Active Substance: BUDESONIDE\FORMOTEROL FUMARATE DIHYDRATE
     Dosage: DOSE REPORTED AS 160UL (PER NEED).DRUG NAME REPORTED AS SYMBIORT AEROSOL.
     Route: 065
  3. TRASTUZUMAB. [Suspect]
     Active Substance: TRASTUZUMAB
     Indication: HER-2 POSITIVE BREAST CANCER
     Dosage: DOSAGE FORM: INFUSION, PERMANENTLY DISCONTINUED
     Route: 042
     Dates: start: 20090318, end: 20090922
  4. DOCETAXEL. [Suspect]
     Active Substance: DOCETAXEL
     Indication: BREAST CANCER METASTATIC
     Dosage: DOSAGE FORM REPORTED AS INFUSION
     Route: 042
  5. PERTUZUMAB. [Suspect]
     Active Substance: PERTUZUMAB
     Dosage: DOSAGE FORM: INFUSION. PERMANENTLY DISCONTINUED
     Route: 042

REACTIONS (1)
  - Left ventricular dysfunction [Not Recovered/Not Resolved]

NARRATIVE: CASE EVENT DATE: 20090902
